FAERS Safety Report 16843303 (Version 1)
Quarter: 2019Q3

REPORT INFORMATION
  Report Type: Spontaneous
  Country: CA (occurrence: CA)
  Receive Date: 20190924
  Receipt Date: 20190924
  Transmission Date: 20191005
  Serious: Yes (Life-Threatening, Hospitalization, Disabling, Other)
  Sender: FDA-Public Use
  Company Number: CA-TEVA-2019-CA-1113230

PATIENT
  Age: 30 Year
  Sex: Female
  Weight: 64 kg

DRUGS (1)
  1. VENLAFAXINE [Suspect]
     Active Substance: VENLAFAXINE HYDROCHLORIDE
     Indication: PRODUCT USED FOR UNKNOWN INDICATION
     Dosage: 150 MILLIGRAM DAILY;
     Route: 048

REACTIONS (7)
  - Confusional state [Recovered/Resolved]
  - Mydriasis [Recovered/Resolved]
  - Hyperhidrosis [Recovered/Resolved]
  - Influenza like illness [Recovered/Resolved]
  - Ulcer [Recovered/Resolved]
  - Lip swelling [Recovered/Resolved]
  - Urticaria [Recovered/Resolved]
